FAERS Safety Report 9364205 (Version 6)
Quarter: 2014Q2

REPORT INFORMATION
  Report Type: Report from Study
  Country: IL (occurrence: IL)
  Receive Date: 20130624
  Receipt Date: 20140416
  Transmission Date: 20141212
  Serious: Yes (Hospitalization)
  Sender: FDA-Public Use
  Company Number: IL-MERCK-1302ISR011243

PATIENT
  Age: 76 Year
  Sex: Male
  Weight: 91 kg

DRUGS (7)
  1. SITAGLIPTIN PHOSPHATE [Suspect]
     Indication: TYPE 2 DIABETES MELLITUS
     Dosage: UNK
     Route: 048
     Dates: start: 20100905, end: 20130620
  2. CADEX (DOXAZOSIN MESYLATE) [Concomitant]
     Indication: HYPERTENSION
     Dosage: 2 MG: DAILY DOSE
     Dates: start: 2008
  3. LERCANIDIPINE HYDROCHLORIDE [Concomitant]
     Indication: HYPERTENSION
     Dosage: 10 MG: DAILY DOSE
     Dates: start: 2008
  4. CARTIA (ASPIRIN) [Concomitant]
     Indication: MYOCARDIAL ISCHAEMIA
     Dosage: 100 MG: DAILY DOSE
     Dates: start: 2008
  5. METFORMIN [Concomitant]
     Indication: TYPE 2 DIABETES MELLITUS
     Dosage: 2550 MG: DAILY DOSE
     Dates: start: 20080101
  6. REPAGLINIDE [Concomitant]
     Indication: TYPE 2 DIABETES MELLITUS
     Dosage: 6MG: DAILY DOSE
     Dates: start: 2011
  7. RAMIPRIL [Concomitant]
     Indication: HYPERTENSION
     Dosage: 5MG: DAILY DOSE
     Dates: start: 2012

REACTIONS (1)
  - Malignant neoplasm of ampulla of Vater [Not Recovered/Not Resolved]
